FAERS Safety Report 9694828 (Version 2)
Quarter: 2013Q4

REPORT INFORMATION
  Report Type: Spontaneous
  Country: BR (occurrence: BR)
  Receive Date: 20131119
  Receipt Date: 20131212
  Transmission Date: 20140711
  Serious: Yes (Other)
  Sender: FDA-Public Use
  Company Number: BR-ASTRAZENECA-2013SE81164

PATIENT
  Age: 71 Year
  Sex: Female
  Weight: 78 kg

DRUGS (11)
  1. ATACAND [Suspect]
     Indication: HYPERTENSION
     Route: 048
     Dates: end: 201311
  2. ATACAND [Suspect]
     Indication: HYPERTENSION
     Route: 048
     Dates: start: 201311
  3. ATENOL [Suspect]
     Indication: HYPERTENSION
     Route: 048
  4. NEXIUM [Suspect]
     Indication: GASTRITIS PROPHYLAXIS
     Route: 048
     Dates: start: 2010
  5. NEXIUM [Suspect]
     Indication: GASTRITIS
     Route: 048
     Dates: start: 2010
  6. NEXIUM [Suspect]
     Indication: OESOPHAGITIS
     Route: 048
     Dates: start: 2010
  7. DILACORON [Concomitant]
     Indication: HYPERTENSION
     Route: 048
  8. LIPITOR [Concomitant]
     Indication: BLOOD CHOLESTEROL ABNORMAL
     Route: 048
  9. SYNTHROID [Concomitant]
     Indication: HYPOTHYROIDISM
     Route: 048
  10. CEBRALAT [Concomitant]
     Indication: VARICOSE VEIN
     Route: 048
  11. CAPILAREMA [Concomitant]
     Indication: ANTICOAGULANT THERAPY
     Dosage: DAILY
     Route: 048

REACTIONS (5)
  - Blood pressure abnormal [Unknown]
  - Gastritis [Unknown]
  - Oesophagitis [Unknown]
  - Off label use [Not Recovered/Not Resolved]
  - Drug ineffective [Unknown]
